FAERS Safety Report 9513744 (Version 1)
Quarter: 2013Q3

REPORT INFORMATION
  Report Type: Report from Study
  Country: CA (occurrence: CA)
  Receive Date: 20130910
  Receipt Date: 20130910
  Transmission Date: 20140515
  Serious: Yes (Death, Other)
  Sender: FDA-Public Use
  Company Number: CA-GENZYME-MOZO-1000906

PATIENT
  Age: 49 Year
  Sex: Female

DRUGS (3)
  1. MOZOBIL [Suspect]
     Indication: HAEMATOPOIETIC STEM CELL MOBILISATION
     Dosage: 14 MG, QID, EVERY 6 HOURS
     Route: 058
     Dates: start: 20130530
  2. FLUDARA [Suspect]
     Indication: BONE MARROW CONDITIONING REGIMEN
     Dosage: UNK
     Route: 065
  3. POSACONAZOLE [Concomitant]
     Indication: INFECTION
     Dosage: 200 MG, UNK
     Route: 048

REACTIONS (7)
  - Suicide attempt [Unknown]
  - Graft versus host disease in intestine [Unknown]
  - Myopathy [Unknown]
  - Cytomegalovirus infection [Unknown]
  - Hyponatraemia [Unknown]
  - Diabetes mellitus [Unknown]
  - Septic shock [Fatal]
